FAERS Safety Report 6176023-1 (Version None)
Quarter: 2009Q2

REPORT INFORMATION
  Report Type: 
  Country: None (occurrence: None)
  Receive Date: 20090501
  Receipt Date: 20090428
  Transmission Date: 20091009
  Serious: Yes (Death, Hospitalization)
  Sender: FDA-Public Use
  Company Number: GB-ROCHE-604143

PATIENT
  Age: 36 Year
  Sex: Female

DRUGS (9)
  1. MYCOPHENOLATE MOFETIL [Suspect]
     Indication: IMMUNOSUPPRESSION
     Route: 065
  2. MYCOPHENOLATE MOFETIL [Suspect]
     Route: 065
  3. AZATHIOPRINE [Suspect]
     Indication: IMMUNOSUPPRESSION
     Route: 065
  4. AZATHIOPRINE [Suspect]
     Route: 065
     Dates: end: 20050601
  5. CYCLOSPORINE [Suspect]
     Indication: IMMUNOSUPPRESSION
     Route: 065
  6. PREDNISOLONE [Suspect]
     Dosage: CO-INDICATION: MYELOFIBROSIS
     Route: 065
     Dates: start: 19960101
  7. PREDNISOLONE [Suspect]
     Dosage: DOSE INCREASED, UPTO 60 MG DAILY, DOSE AS: 1MG/KG
     Route: 065
  8. THALIDOMIDE [Suspect]
     Dosage: OTHER INDICATION: STEROID SPARING AGENT
     Route: 065
     Dates: start: 20051001
  9. ALEMTUZUMAB [Suspect]
     Indication: DRUG USE FOR UNKNOWN INDICATION
     Route: 042

REACTIONS (12)
  - ACUTE MYELOID LEUKAEMIA [None]
  - ANTINUCLEAR ANTIBODY POSITIVE [None]
  - ASPIRATION BONE MARROW ABNORMAL [None]
  - FIBROSIS [None]
  - MICROANGIOPATHY [None]
  - MYELODYSPLASTIC SYNDROME [None]
  - MYELOFIBROSIS [None]
  - PANCYTOPENIA [None]
  - PLATELET COUNT ABNORMAL [None]
  - PYREXIA [None]
  - RED BLOOD CELL ABNORMALITY [None]
  - RHEUMATOID FACTOR POSITIVE [None]
